FAERS Safety Report 6823100-5 (Version None)
Quarter: 2010Q3

REPORT INFORMATION
  Report Type: 
  Country: None (occurrence: None)
  Receive Date: 20100708
  Receipt Date: 20100630
  Transmission Date: 20110219
  Serious: Yes (Other)
  Sender: FDA-Public Use
  Company Number: JP-MERCK-1007USA00228

PATIENT
  Age: 52 Year
  Sex: Female

DRUGS (2)
  1. STROMECTOL [Suspect]
     Indication: ACARODERMATITIS
     Route: 048
     Dates: start: 20090831, end: 20090831
  2. STROMECTOL [Suspect]
     Route: 048
     Dates: start: 20090907, end: 20090907

REACTIONS (1)
  - PROTEINURIA [None]
